FAERS Safety Report 17424791 (Version 3)
Quarter: 2020Q1

REPORT INFORMATION
  Report Type: Report from Study
  Country: US (occurrence: US)
  Receive Date: 20200217
  Receipt Date: 20200325
  Transmission Date: 20200409
  Serious: Yes (Other)
  Sender: FDA-Public Use
  Company Number: NVSC2020US037060

PATIENT
  Sex: Male
  Weight: 85.1 kg

DRUGS (1)
  1. ENTRESTO [Suspect]
     Active Substance: SACUBITRIL\VALSARTAN
     Indication: CARDIAC FAILURE
     Dosage: 50 MG (24MG VALSARTAN AND 26MG SACUBITRIL), BID
     Route: 048

REACTIONS (1)
  - Deafness [Not Recovered/Not Resolved]
